FAERS Safety Report 8427627-4 (Version None)
Quarter: 2012Q2

REPORT INFORMATION
  Report Type: 
  Country: None (occurrence: None)
  Receive Date: 20120611
  Receipt Date: 20120530
  Transmission Date: 20120825
  Serious: Yes (Other)
  Sender: FDA-Public Use
  Company Number: US-JNJFOC-20120520928

PATIENT
  Sex: Female

DRUGS (3)
  1. INSULIN [Concomitant]
     Indication: DIABETES MELLITUS
     Route: 065
     Dates: end: 19820101
  2. VERAPAMIL [Concomitant]
     Route: 065
  3. HALDOL [Suspect]
     Indication: HEART RATE INCREASED
     Route: 048
     Dates: start: 20100101, end: 20100101

REACTIONS (3)
  - OFF LABEL USE [None]
  - HEART RATE DECREASED [None]
  - MIDDLE INSOMNIA [None]
